FAERS Safety Report 18022179 (Version 1)
Quarter: 2020Q3

REPORT INFORMATION
  Report Type: Spontaneous
  Country: MX (occurrence: MX)
  Receive Date: 20200714
  Receipt Date: 20200714
  Transmission Date: 20201103
  Serious: Yes (Other)
  Sender: FDA-Public Use
  Company Number: MX-SUPERNUS PHARMACEUTICALS, INC.-2020SUP00176

PATIENT
  Sex: Male

DRUGS (1)
  1. EXPLIGA XR [Suspect]
     Active Substance: TOPIRAMATE
     Indication: PARTIAL SEIZURES
     Dosage: 100 MG, 1X/DAY
     Route: 048
     Dates: start: 20181221

REACTIONS (1)
  - Hyperkeratosis [Unknown]
